FAERS Safety Report 5484564-5 (Version None)
Quarter: 2007Q4

REPORT INFORMATION
  Report Type: 
  Country: None (occurrence: None)
  Receive Date: 20071012
  Receipt Date: 20071002
  Transmission Date: 20080405
  Serious: Yes (Other)
  Sender: FDA-Public Use
  Company Number: US-PFIZER INC-2007084876

PATIENT
  Sex: Female
  Weight: 68.181 kg

DRUGS (9)
  1. CHANTIX [Suspect]
     Indication: SMOKING CESSATION THERAPY
  2. VALSARTAN [Concomitant]
  3. ACETYLSALICYLIC ACID [Concomitant]
  4. KLONOPIN [Concomitant]
     Indication: TREMOR
  5. LOVASTATIN [Concomitant]
  6. LEVOTHYROXINE SODIUM [Concomitant]
     Indication: THYROID DISORDER
  7. TRAMADOL HCL [Concomitant]
  8. DICLOFENAC SODIUM [Concomitant]
  9. PROPRANOLOL [Concomitant]

REACTIONS (3)
  - GAIT DISTURBANCE [None]
  - NAUSEA [None]
  - TREMOR [None]
